FAERS Safety Report 8953086 (Version 1)
Quarter: 2012Q4

REPORT INFORMATION
  Report Type: 
  Country: DE (occurrence: DE)
  Receive Date: 20121205
  Receipt Date: 20121205
  Transmission Date: 20130627
  Serious: Yes (Other)
  Sender: FDA-Public Use
  Company Number: PHHY2010DE094906

PATIENT
  Sex: Female

DRUGS (1)
  1. FORMOTEROL FUMARATE [Suspect]
     Dosage: 12 ug, UNK
     Route: 055

REACTIONS (3)
  - Drug abuse [Unknown]
  - Incorrect dose administered by device [Unknown]
  - Device malfunction [Unknown]
